FAERS Safety Report 7938961-6 (Version None)
Quarter: 2011Q4

REPORT INFORMATION
  Report Type: 
  Country: None (occurrence: None)
  Receive Date: 20111124
  Receipt Date: 20111122
  Transmission Date: 20120403
  Serious: No
  Sender: FDA-Public Use
  Company Number: US-PFIZER INC-2011286026

PATIENT
  Sex: Male
  Weight: 95.238 kg

DRUGS (2)
  1. DILANTIN [Suspect]
     Indication: CONVULSION
     Dosage: 300 MG, DAILY
     Route: 048
     Dates: start: 19810101
  2. DILANTIN [Suspect]
     Indication: EPILEPSY

REACTIONS (2)
  - GINGIVAL HYPERPLASIA [None]
  - OEDEMA MOUTH [None]
